FAERS Safety Report 9719204 (Version 2)
Quarter: 2014Q1

REPORT INFORMATION
  Report Type: Spontaneous
  Country: NO (occurrence: NO)
  Receive Date: 20131127
  Receipt Date: 20140128
  Transmission Date: 20141002
  Serious: Yes (Other)
  Sender: FDA-Public Use
  Company Number: PHHY2013NO136797

PATIENT
  Sex: 0

DRUGS (1)
  1. RITALINE [Suspect]
     Dosage: UNK

REACTIONS (3)
  - Drug abuse [Unknown]
  - Intentional drug misuse [Unknown]
  - Wrong technique in drug usage process [Unknown]
